FAERS Safety Report 17938472 (Version 1)
Quarter: 2020Q2

REPORT INFORMATION
  Report Type: Spontaneous
  Country: US (occurrence: US)
  Receive Date: 20200625
  Receipt Date: 20200625
  Transmission Date: 20200714
  Serious: No
  Sender: FDA-Public Use
  Company Number: US-AMGEN-USASP2020092413

PATIENT
  Age: 46 Year
  Sex: Female

DRUGS (1)
  1. OTEZLA [Suspect]
     Active Substance: APREMILAST
     Indication: LICHENOID KERATOSIS
     Dosage: UNK
     Route: 065
     Dates: start: 20180805

REACTIONS (4)
  - Vomiting [Unknown]
  - Diarrhoea [Unknown]
  - Off label use [Unknown]
  - Nausea [Unknown]

NARRATIVE: CASE EVENT DATE: 20180805
